FAERS Safety Report 5777732-6 (Version None)
Quarter: 2008Q2

REPORT INFORMATION
  Report Type: 
  Country: None (occurrence: None)
  Receive Date: 20080601
  Receipt Date: 20080107
  Transmission Date: 20081010
  Serious: No
  Sender: FDA-Public Use
  Company Number: US200801001369

PATIENT
  Sex: Female

DRUGS (2)
  1. BYETTA [Suspect]
     Dosage: SUBCUTANEOUS ; 5 UG, SUBCUTANEOUS
     Route: 058
     Dates: start: 20071201, end: 20071201
  2. BYETTA [Suspect]
     Dosage: SUBCUTANEOUS ; 5 UG, SUBCUTANEOUS
     Route: 058
     Dates: start: 20080107

REACTIONS (1)
  - MALAISE [None]
